FAERS Safety Report 11179363 (Version 4)
Quarter: 2015Q3

REPORT INFORMATION
  Report Type: Spontaneous
  Country: DE (occurrence: DE)
  Receive Date: 20150611
  Receipt Date: 20150713
  Transmission Date: 20151125
  Serious: Yes (Hospitalization)
  Sender: FDA-Public Use
  Company Number: DE-AMGEN-DEUSP2015056376

PATIENT
  Sex: Female

DRUGS (27)
  1. ZOLPIDEM [Concomitant]
     Active Substance: ZOLPIDEM\ZOLPIDEM TARTRATE
     Indication: SLEEP DISORDER
     Dosage: 5 MG, FOR 6 DAYS
     Dates: start: 20150529, end: 20150603
  2. VINCRISTINE [Suspect]
     Active Substance: VINCRISTINE
     Indication: B-CELL LYMPHOMA
     Dosage: 4.06 MG, 1 IN 1 D
     Route: 042
     Dates: start: 20150519
  3. PREDNISOLONE. [Suspect]
     Active Substance: PREDNISOLONE
     Dosage: 100 MG, UNK
     Route: 048
     Dates: start: 20150615
  4. RITUXIMAB [Concomitant]
     Active Substance: RITUXIMAB
     Indication: B-CELL LYMPHOMA
     Dosage: 750 MG, 4 IN 11 D
     Route: 042
     Dates: start: 20150512
  5. VALSARTAN. [Concomitant]
     Active Substance: VALSARTAN
     Indication: BLOOD PRESSURE MEASUREMENT
     Dosage: 80/125 MG, DAILY
     Route: 048
  6. METOCLOPRAMIDE. [Concomitant]
     Active Substance: METOCLOPRAMIDE
     Indication: VOMITING
     Dosage: 10 MG, 2 IN 1 D
     Route: 048
  7. PEGFILGRASTIM [Suspect]
     Active Substance: PEGFILGRASTIM
     Dosage: 6 MCG, 1 IN 1 D
     Route: 058
     Dates: start: 20150618
  8. DOXORUBICINE [Suspect]
     Active Substance: DOXORUBICIN
     Indication: B-CELL LYMPHOMA
     Dosage: 100 MG, 1 IN 1 D
     Route: 042
     Dates: start: 20150519
  9. DARBEPOETIN ALFA [Concomitant]
     Active Substance: DARBEPOETIN ALFA
     Indication: ANAEMIA
     Dosage: 50 MCG, 1 IN 1 D
     Route: 058
     Dates: start: 20150618, end: 20150618
  10. SULFAMETHOXAZOLE AND TRIMETHOPRIM [Concomitant]
     Active Substance: SULFAMETHOXAZOLE\TRIMETHOPRIM
     Dosage: 960 MG, 3 IN 1 WK
     Route: 048
     Dates: start: 20150522
  11. ACICLOVIR [Concomitant]
     Active Substance: ACYCLOVIR
     Indication: PROPHYLAXIS
     Dosage: 400 MG, 2 IN 1 D
     Route: 048
  12. VINCRISTINE [Suspect]
     Active Substance: VINCRISTINE
     Dosage: 4.04 MG, 1 IN 1 D
     Route: 042
     Dates: start: 20150616
  13. DIMETINDENE [Concomitant]
     Active Substance: DIMETHINDENE
     Indication: ALLERGY PROPHYLAXIS
     Dosage: 4 MG, 4 IN 11 D
     Route: 042
     Dates: start: 20150512, end: 20150522
  14. MACROGOL [Concomitant]
     Active Substance: POLYETHYLENE GLYCOLS
     Indication: CONSTIPATION
     Dosage: UNK
  15. SODIUM HYDROGEN CARBONATE [Concomitant]
     Active Substance: SODIUM BICARBONATE
     Indication: CONSTIPATION
     Dosage: UNK
  16. RANITIDIN [Concomitant]
     Active Substance: RANITIDINE HYDROCHLORIDE
     Indication: ALLERGY PROPHYLAXIS
     Dosage: 50 MG, 4 IN 11 D
     Route: 042
     Dates: start: 20150512, end: 20150522
  17. PARACETAMOL [Concomitant]
     Active Substance: ACETAMINOPHEN
     Indication: ANALGESIC THERAPY
     Dosage: 1000 MG, 4 IN 11 D
     Route: 048
     Dates: start: 20150512, end: 20150522
  18. METAMIZOLE SODIUM [Concomitant]
     Active Substance: METAMIZOLE SODIUM
     Indication: PAIN
     Dosage: 1000 MG, 4 IN 1 D
     Route: 048
     Dates: start: 20150527
  19. POTASSIUM CHLORIDE W/SODIUM CHLORIDE [Concomitant]
     Active Substance: POTASSIUM CHLORIDE\SODIUM CHLORIDE
     Indication: CONSTIPATION
     Dosage: UNK
  20. PEGFILGRASTIM [Suspect]
     Active Substance: PEGFILGRASTIM
     Indication: B-CELL LYMPHOMA
     Dosage: 6 MG, 1 IN 1 D
     Route: 058
     Dates: start: 20150522, end: 20150522
  21. CYCLOPHOSPHAMIDE. [Suspect]
     Active Substance: CYCLOPHOSPHAMIDE
     Dosage: 1500 MG, 1 IN 1 D
     Route: 042
     Dates: start: 20150616
  22. DOXORUBICINE [Suspect]
     Active Substance: DOXORUBICIN
     Dosage: 100 MG, 1 IN 1 D
     Route: 042
     Dates: start: 20150616
  23. MESNA. [Concomitant]
     Active Substance: MESNA
     Dosage: 400 MG, 2 IN 1 D
     Route: 042
     Dates: start: 20150519, end: 20150519
  24. CYCLOPHOSPHAMIDE. [Suspect]
     Active Substance: CYCLOPHOSPHAMIDE
     Indication: B-CELL LYMPHOMA
     Dosage: 1500 MG, 1 IN 1 D
     Route: 042
     Dates: start: 20150519, end: 20150519
  25. PREDNISOLONE. [Suspect]
     Active Substance: PREDNISOLONE
     Indication: B-CELL LYMPHOMA
     Dosage: 100 MG, 8 IN 12 D
     Route: 048
     Dates: start: 20150512
  26. RITUXIMAB [Concomitant]
     Active Substance: RITUXIMAB
     Dosage: 750 MG, 1 IN 1 D
     Route: 042
     Dates: start: 20150615
  27. GRANISETRON [Concomitant]
     Active Substance: GRANISETRON
     Indication: VOMITING
     Dosage: 1 MG, 1 IN 1 D
     Route: 042
     Dates: start: 20150519, end: 20150519

REACTIONS (3)
  - Post procedural cellulitis [Recovered/Resolved]
  - Lymphadenectomy [Recovered/Resolved]
  - Hypovolaemic shock [Recovered/Resolved]

NARRATIVE: CASE EVENT DATE: 20150526
